FAERS Safety Report 4960090-4 (Version None)
Quarter: 2006Q1

REPORT INFORMATION
  Report Type: 
  Country: None (occurrence: None)
  Receive Date: 20060328
  Receipt Date: 20060313
  Transmission Date: 20060701
  Serious: Yes (Disabling)
  Sender: FDA-Public Use
  Company Number: 2006039246

PATIENT
  Age: 63 Year
  Sex: Male
  Weight: 88.4514 kg

DRUGS (4)
  1. SUTENT [Suspect]
     Indication: RENAL CELL CARCINOMA STAGE UNSPECIFIED
     Dosage: 50 MG (50 MG, 1 IN 1 D), ORAL
     Route: 048
     Dates: start: 20060201, end: 20060301
  2. LISINOPRIL [Concomitant]
  3. ATENOLOL [Concomitant]
  4. TERAZOSIN (TERAZOSIN) [Concomitant]

REACTIONS (7)
  - ABASIA [None]
  - BLOOD PRESSURE INADEQUATELY CONTROLLED [None]
  - BONE DISORDER [None]
  - CONDITION AGGRAVATED [None]
  - HYPERTENSION [None]
  - PAIN [None]
  - THERAPY NON-RESPONDER [None]
